FAERS Safety Report 12476630 (Version 2)
Quarter: 2016Q2

REPORT INFORMATION
  Report Type: Spontaneous
  Country: CL (occurrence: CL)
  Receive Date: 20160617
  Receipt Date: 20160623
  Transmission Date: 20160815
  Serious: Yes (Other)
  Sender: FDA-Public Use
  Company Number: CL-009507513-1606CHL005588

PATIENT
  Age: 27 Year
  Sex: Female

DRUGS (2)
  1. IMPLANON [Suspect]
     Active Substance: ETONOGESTREL
     Dosage: UNK, IN THE LEFT ARM
     Dates: start: 20130408, end: 20160608
  2. IMPLANON [Suspect]
     Active Substance: ETONOGESTREL
     Dosage: UNK, IN THE LEFT ARM
     Dates: start: 20160426

REACTIONS (6)
  - Device difficult to use [Recovering/Resolving]
  - Complication associated with device [Recovering/Resolving]
  - Incorrect drug administration duration [Unknown]
  - Overdose [Unknown]
  - Device dislocation [Recovering/Resolving]
  - Device deployment issue [Recovering/Resolving]

NARRATIVE: CASE EVENT DATE: 20130408
